FAERS Safety Report 25395165 (Version 1)
Quarter: 2025Q2

REPORT INFORMATION
  Report Type: Spontaneous
  Country: IT (occurrence: IT)
  Receive Date: 20250604
  Receipt Date: 20250604
  Transmission Date: 20250716
  Serious: Yes (Hospitalization)
  Sender: MYLAN
  Company Number: IT-MYLANLABS-2025M1047071

PATIENT
  Age: 65 Year
  Sex: Male

DRUGS (4)
  1. NITROGLYCERIN [Suspect]
     Active Substance: NITROGLYCERIN
     Indication: Angiopathy
  2. NITROGLYCERIN [Suspect]
     Active Substance: NITROGLYCERIN
     Route: 022
  3. NITROGLYCERIN [Suspect]
     Active Substance: NITROGLYCERIN
     Route: 022
  4. NITROGLYCERIN [Suspect]
     Active Substance: NITROGLYCERIN

REACTIONS (1)
  - Drug ineffective [Unknown]
